FAERS Safety Report 7332820-8 (Version None)
Quarter: 2011Q1

REPORT INFORMATION
  Report Type: 
  Country: None (occurrence: None)
  Receive Date: 20110304
  Receipt Date: 20110221
  Transmission Date: 20110831
  Serious: Yes (Other)
  Sender: FDA-Public Use
  Company Number: PHHY2011DE14955

PATIENT
  Age: 61 Year
  Sex: Male

DRUGS (2)
  1. TIMOX [Suspect]
     Dosage: 5 DF DAILY
  2. BLANEL [Interacting]

REACTIONS (3)
  - DRUG INTERACTION [None]
  - BLOOD URIC ACID INCREASED [None]
  - CONVULSION [None]
